FAERS Safety Report 20360102 (Version 3)
Quarter: 2022Q1

REPORT INFORMATION
  Report Type: Report from Study
  Country: DK (occurrence: DK)
  Receive Date: 20220121
  Receipt Date: 20220310
  Transmission Date: 20220423
  Serious: Yes (Hospitalization)
  Sender: FDA-Public Use
  Company Number: DK-CELLTRION INC.-2022DK000439

PATIENT

DRUGS (20)
  1. RITUXIMAB [Suspect]
     Active Substance: RITUXIMAB
     Indication: Follicular lymphoma
     Dosage: 750 MG, EVERY 4 WEEKS (DATE OF LAST DOSE PRIOR TO EVENT: 9/SEP/2021 DATE OF LAST DOSE PRIOR TO EVENT
     Route: 041
     Dates: start: 20210308
  2. BENDAMUSTINE [Suspect]
     Active Substance: BENDAMUSTINE
     Indication: Follicular lymphoma
     Dosage: 180 MG, EVERY 1 DAY
     Route: 042
     Dates: start: 20210308
  3. EPCORITAMAB [Suspect]
     Active Substance: EPCORITAMAB
     Indication: Follicular lymphoma
     Dosage: 0.16 MG, EVERY 1 DAY (PRIMING DOSE, SINGLE)
     Route: 058
     Dates: start: 20210308, end: 20210308
  4. EPCORITAMAB [Suspect]
     Active Substance: EPCORITAMAB
     Dosage: 24 MG, EVERY 1 WEEK (FULL DOSE, CYCLE 1-3)
     Route: 058
     Dates: start: 20210322, end: 20210527
  5. EPCORITAMAB [Suspect]
     Active Substance: EPCORITAMAB
     Dosage: 24 MG, EVERY 2 WEEKS (FULL DOSE, CYCLE 4-9)
     Route: 058
     Dates: start: 20210607
  6. EPCORITAMAB [Suspect]
     Active Substance: EPCORITAMAB
     Dosage: 0.8 MG, EVERY 1 DAY (INTERMEDIATE DOSE, SINGLE)
     Route: 058
     Dates: start: 20210315, end: 20210315
  7. METOCLOPRAMIDE;ONDANSETRON [Concomitant]
     Dosage: UNK
     Route: 065
     Dates: start: 20210509
  8. ACETAMINOPHEN [Concomitant]
     Active Substance: ACETAMINOPHEN
     Dosage: UNK
     Route: 065
     Dates: start: 20210308
  9. HYDROCORTISONE;MICONAZOLE NITRATE [Concomitant]
     Dosage: UNK
     Route: 065
     Dates: start: 20210715
  10. ACYCLOVIR [Concomitant]
     Active Substance: ACYCLOVIR
     Route: 065
  11. CLEMASTINE FUMARATE [Concomitant]
     Active Substance: CLEMASTINE FUMARATE
     Dosage: UNK
     Route: 065
     Dates: start: 20210509
  12. FLUTICASONE FUROATE\VILANTEROL TRIFENATATE [Concomitant]
     Active Substance: FLUTICASONE FUROATE\VILANTEROL TRIFENATATE
     Dosage: UNK
     Route: 065
     Dates: start: 20210708
  13. CALCIUM\CHOLECALCIFEROL [Concomitant]
     Active Substance: CALCIUM\CHOLECALCIFEROL
     Dosage: UNK
     Route: 065
     Dates: start: 20210504
  14. ALBUTEROL [Concomitant]
     Active Substance: ALBUTEROL
     Dosage: UNK
     Route: 065
     Dates: start: 20210708
  15. DAPSONE [Concomitant]
     Active Substance: DAPSONE
     Route: 065
  16. AMDINOCILLIN PIVOXIL [Concomitant]
     Active Substance: AMDINOCILLIN PIVOXIL
     Route: 065
  17. KALIUMKLORID [Concomitant]
     Dosage: UNK
     Route: 065
     Dates: start: 20210308
  18. CEFUROXIME [Concomitant]
     Active Substance: CEFUROXIME
     Route: 065
  19. PRAMIPEXOLE [Concomitant]
     Active Substance: PRAMIPEXOLE
     Dosage: UNK
     Route: 065
     Dates: start: 20120823
  20. LOPERAMIDE [Concomitant]
     Active Substance: LOPERAMIDE
     Dosage: UNK
     Route: 065
     Dates: start: 20210518

REACTIONS (5)
  - Blood creatinine increased [Unknown]
  - Hydronephrosis [Unknown]
  - Abdominal pain [Recovered/Resolved]
  - Constipation [Unknown]
  - Sepsis [Unknown]

NARRATIVE: CASE EVENT DATE: 20210712
